FAERS Safety Report 7313149-0 (Version None)
Quarter: 2011Q1

REPORT INFORMATION
  Report Type: 
  Country: None (occurrence: None)
  Receive Date: 20110216
  Receipt Date: 20110216
  Transmission Date: 20110831
  Serious: Yes (Other)
  Sender: FDA-Public Use
  Company Number: None

PATIENT
  Sex: Female

DRUGS (1)
  1. BUPROPION HCL [Suspect]
     Indication: DEPRESSION
     Dosage: 300 MG QD PO
     Route: 048
     Dates: start: 20101113, end: 20101214

REACTIONS (5)
  - DRUG INEFFECTIVE [None]
  - FACE OEDEMA [None]
  - PRODUCT SUBSTITUTION ISSUE [None]
  - URTICARIA [None]
  - RASH PRURITIC [None]
